FAERS Safety Report 9897157 (Version 2)
Quarter: 2014Q2

REPORT INFORMATION
  Report Type: Report from Study
  Country: US (occurrence: US)
  Receive Date: 20140214
  Receipt Date: 20140603
  Transmission Date: 20141212
  Serious: Yes (Other)
  Sender: FDA-Public Use
  Company Number: US-BRISTOL-MYERS SQUIBB COMPANY-20173183

PATIENT
  Age: 77 Year
  Sex: Male

DRUGS (1)
  1. ORENCIA [Suspect]

REACTIONS (1)
  - Cerebrovascular accident [Unknown]
